FAERS Safety Report 4372900-2 (Version None)
Quarter: 2004Q2

REPORT INFORMATION
  Report Type: 
  Country: None (occurrence: None)
  Receive Date: 20040603
  Receipt Date: 20030204
  Transmission Date: 20050107
  Serious: Yes (Hospitalization)
  Sender: FDA-Public Use
  Company Number: F01200300116

PATIENT
  Age: 77 Year
  Sex: Male

DRUGS (7)
  1. XATRAL - (ALFUZOSIN) - TABLET PR - 10 MG [Suspect]
     Indication: BENIGN PROSTATIC HYPERPLASIA
     Dosage: 10 MG OD
     Route: 048
     Dates: start: 20021113, end: 20030117
  2. PRAVASTATIN [Concomitant]
  3. ADALAT [Concomitant]
  4. COMBIVENT (SALBUTAMOL / IPRATROPIUM) [Concomitant]
  5. ADVAIR DISKUS 100/50 [Concomitant]
  6. MULTI-VITAMIN [Concomitant]
  7. CALCIUM [Concomitant]

REACTIONS (3)
  - CARDIAC ARREST [None]
  - MYOCARDIAL INFARCTION [None]
  - OEDEMA PERIPHERAL [None]
